FAERS Safety Report 10565182 (Version 2)
Quarter: 2014Q4

REPORT INFORMATION
  Report Type: Spontaneous
  Country: FR (occurrence: None)
  Receive Date: 20141103
  Receipt Date: 20141117
  Transmission Date: 20150529
  Serious: Yes (Hospitalization, Other)
  Sender: FDA-Public Use
  Company Number: NGX_02627_2014

PATIENT
  Age: 41 Year
  Sex: Female

DRUGS (5)
  1. PREGABALINE [Concomitant]
     Active Substance: PREGABALIN
  2. ORBENINE [Suspect]
     Active Substance: CLOXACILLIN SODIUM
     Indication: DEVICE RELATED INFECTION
     Dates: start: 2014, end: 20140322
  3. VENLAFAXINE [Concomitant]
     Active Substance: VENLAFAXINE HYDROCHLORIDE
  4. PRILOCAINE [Concomitant]
     Active Substance: PRILOCAINE
  5. QUTENZA [Suspect]
     Active Substance: CAPSAICIN
     Indication: NEUROPATHY PERIPHERAL
     Dosage: 1 DF (CUTANEOUS PATCH)TRANSDERMAL), (0.8 DF, (CUTANEOUS PATCH) TRANSDERMAL), (0.8 DF, (CUTANEOUS PATCH)TRANSDERMAL)
     Route: 062
     Dates: start: 20121205, end: 20121205

REACTIONS (4)
  - Acute kidney injury [None]
  - Device related infection [None]
  - Soft tissue infection [None]
  - Staphylococcal infection [None]

NARRATIVE: CASE EVENT DATE: 2014
